FAERS Safety Report 17108169 (Version 2)
Quarter: 2020Q2

REPORT INFORMATION
  Report Type: Spontaneous
  Country: US (occurrence: US)
  Receive Date: 20191204
  Receipt Date: 20200528
  Transmission Date: 20200713
  Serious: No
  Sender: FDA-Public Use
  Company Number: US-UCBSA-2017042874

PATIENT
  Age: 37 Year
  Sex: Female

DRUGS (1)
  1. CIMZIA [Suspect]
     Active Substance: CERTOLIZUMAB PEGOL
     Indication: PRODUCT USED FOR UNKNOWN INDICATION
     Dosage: STARTER (6X200MG/ML)

REACTIONS (5)
  - Dizziness [Unknown]
  - Alopecia [Unknown]
  - Migraine [Unknown]
  - Weight increased [Unknown]
  - Injection site urticaria [Unknown]

NARRATIVE: CASE EVENT DATE: 20170914
